FAERS Safety Report 18954649 (Version 1)
Quarter: 2021Q1

REPORT INFORMATION
  Report Type: Spontaneous
  Country: PL (occurrence: PL)
  Receive Date: 20210301
  Receipt Date: 20210301
  Transmission Date: 20210420
  Serious: Yes (Hospitalization, Other)
  Sender: FDA-Public Use
  Company Number: PL-ELI_LILLY_AND_COMPANY-PL202102011945

PATIENT
  Age: 58 Year
  Sex: Male

DRUGS (7)
  1. DIHYDROCODEINE [Concomitant]
     Active Substance: DIHYDROCODEINE
     Indication: COUGH
     Dosage: 60 MG, BID
     Route: 065
  2. PEMETREXED. [Suspect]
     Active Substance: PEMETREXED
     Indication: LUNG ADENOCARCINOMA STAGE IV
     Dosage: UNK, UNKNOWN
     Route: 065
     Dates: start: 201612, end: 201704
  3. GEMCITABINE HYDROCHLORIDE. [Suspect]
     Active Substance: GEMCITABINE HYDROCHLORIDE
     Indication: LUNG ADENOCARCINOMA STAGE IV
     Dosage: 1000 MG/M2, CYCLICAL
     Route: 065
     Dates: start: 202002, end: 202003
  4. DOCETAXEL. [Concomitant]
     Active Substance: DOCETAXEL
     Indication: LUNG ADENOCARCINOMA STAGE IV
     Dosage: UNK, CYCLICAL
     Route: 065
     Dates: start: 201812, end: 202001
  5. NINTEDANIB [Concomitant]
     Active Substance: NINTEDANIB
     Indication: LUNG ADENOCARCINOMA STAGE IV
     Dosage: UNK UNK, CYCLICAL
     Route: 065
     Dates: start: 201812, end: 202001
  6. CISPLATIN. [Suspect]
     Active Substance: CISPLATIN
     Indication: LUNG ADENOCARCINOMA STAGE IV
     Dosage: UNK UNK, CYCLICAL
     Route: 065
     Dates: start: 201612, end: 201704
  7. DIHYDROCODEINE [Concomitant]
     Active Substance: DIHYDROCODEINE
     Indication: CHEST PAIN

REACTIONS (12)
  - Decreased appetite [Unknown]
  - Pulmonary embolism [Unknown]
  - Nausea [Unknown]
  - Malignant neoplasm progression [Unknown]
  - Malaise [Unknown]
  - Upper respiratory tract infection [Unknown]
  - Pyrexia [Unknown]
  - Nephropathy toxic [Unknown]
  - Abdominal pain [Unknown]
  - Thrombocytopenia [Unknown]
  - Asthenia [Unknown]
  - Neutropenia [Unknown]

NARRATIVE: CASE EVENT DATE: 202004
